FAERS Safety Report 13364656 (Version 1)
Quarter: 2017Q1

REPORT INFORMATION
  Report Type: Spontaneous
  Country: US (occurrence: US)
  Receive Date: 20170323
  Receipt Date: 20170323
  Transmission Date: 20170429
  Serious: No
  Sender: FDA-Public Use
  Company Number: US-WARNER CHILCOTT, LLC-1064585

PATIENT
  Age: 58 Year
  Sex: Female

DRUGS (5)
  1. DELZICOL [Suspect]
     Active Substance: MESALAMINE
     Indication: CROHN^S DISEASE
     Route: 048
     Dates: start: 201501, end: 2015
  2. ASACOL [Suspect]
     Active Substance: MESALAMINE
  3. CURCUMIN [Concomitant]
     Active Substance: CURCUMIN
  4. DELZICOL [Suspect]
     Active Substance: MESALAMINE
     Route: 048
     Dates: start: 201610
  5. DELZICOL [Suspect]
     Active Substance: MESALAMINE
     Route: 048
     Dates: start: 2015

REACTIONS (11)
  - Flatulence [Not Recovered/Not Resolved]
  - Arthralgia [Not Recovered/Not Resolved]
  - Tendonitis [Not Recovered/Not Resolved]
  - Gastrointestinal pain [Not Recovered/Not Resolved]
  - Abdominal distension [Not Recovered/Not Resolved]
  - Gastrointestinal sounds abnormal [Not Recovered/Not Resolved]
  - Skin ulcer [Not Recovered/Not Resolved]
  - Drug effect decreased [Not Recovered/Not Resolved]
  - Fatigue [Not Recovered/Not Resolved]
  - Drug ineffective [Not Recovered/Not Resolved]
  - Condition aggravated [Not Recovered/Not Resolved]

NARRATIVE: CASE EVENT DATE: 201501
